FAERS Safety Report 4530294-3 (Version None)
Quarter: 2004Q4

REPORT INFORMATION
  Report Type: 
  Country: None (occurrence: None)
  Receive Date: 20041217
  Receipt Date: 20041207
  Transmission Date: 20050328
  Serious: Yes (Life-Threatening, Hospitalization, Disabling)
  Sender: FDA-Public Use
  Company Number: US-MERCK-0412USA00936

PATIENT
  Age: 56 Year
  Sex: Female

DRUGS (8)
  1. VIOXX [Suspect]
     Indication: PAIN MANAGEMENT
     Route: 048
     Dates: start: 20020101
  2. VIOXX [Suspect]
     Route: 048
     Dates: start: 20040701, end: 20041001
  3. DILTIAZEM HYDROCHLORIDE [Concomitant]
     Route: 065
  4. LORAZEPAM [Concomitant]
     Route: 065
  5. PRINIVIL [Concomitant]
     Route: 048
  6. ATENOLOL [Concomitant]
     Route: 065
  7. PAXIL [Concomitant]
     Route: 065
  8. AMBIEN [Concomitant]
     Route: 065

REACTIONS (2)
  - CARDIAC ARREST [None]
  - SKIN IRRITATION [None]
